FAERS Safety Report 6098135-3 (Version None)
Quarter: 2009Q1

REPORT INFORMATION
  Report Type: 
  Country: None (occurrence: None)
  Receive Date: 20090227
  Receipt Date: 20090225
  Transmission Date: 20090719
  Serious: Yes (Life-Threatening, Other)
  Sender: FDA-Public Use
  Company Number: ZA-B.I. PHARMACEUTICALS,INC./RIDGEFIELD-2009-BP-01441BP

PATIENT
  Sex: Female
  Weight: 92 kg

DRUGS (12)
  1. VIRAMUNE [Suspect]
     Indication: HIV INFECTION
     Dosage: 400MG
     Route: 048
     Dates: start: 20080226, end: 20080729
  2. TRUVADA [Suspect]
     Indication: HIV INFECTION
     Route: 048
     Dates: start: 20080226, end: 20080620
  3. COMBIVIR [Suspect]
     Indication: HIV INFECTION
     Route: 048
     Dates: start: 20080620, end: 20080729
  4. BACTRIM [Concomitant]
     Dates: start: 20080213
  5. VIT B CO [Concomitant]
     Dates: start: 20080325
  6. VIT C [Concomitant]
     Dates: start: 20080325
  7. ERYTHROMYCIN [Concomitant]
     Dates: start: 20080701
  8. CANEX VAGINAL CREAM [Concomitant]
     Dates: start: 20080701
  9. FLAGYL [Concomitant]
     Dates: start: 20080126
  10. PANADO [Concomitant]
     Dates: start: 20080516
  11. METHYL SALICYLATE [Concomitant]
     Dates: start: 20080518
  12. BRUFEN [Concomitant]
     Dates: start: 20080520

REACTIONS (1)
  - ABORTION SPONTANEOUS [None]
